FAERS Safety Report 8989787 (Version 1)
Quarter: 2012Q4

REPORT INFORMATION
  Report Type: 
  Country: US (occurrence: US)
  Receive Date: 20121228
  Receipt Date: 20121228
  Transmission Date: 20130627
  Serious: Yes (Other)
  Sender: FDA-Public Use
  Company Number: US-PFIZER INC-2012330232

PATIENT
  Age: 71 Year
  Sex: Male

DRUGS (2)
  1. ADVIL [Suspect]
     Indication: HEADACHE
     Dosage: 200 mg, as needed
     Route: 048
  2. ADVIL [Suspect]
     Indication: PAIN IN LEG

REACTIONS (2)
  - Myocardial infarction [Unknown]
  - Hypertension [Unknown]
